FAERS Safety Report 17874936 (Version 1)
Quarter: 2020Q2

REPORT INFORMATION
  Report Type: Spontaneous
  Country: US (occurrence: US)
  Receive Date: 20200609
  Receipt Date: 20200609
  Transmission Date: 20200714
  Serious: No
  Sender: FDA-Public Use
  Company Number: US-PFIZER INC-2019461598

PATIENT
  Age: 47 Year
  Sex: Female

DRUGS (2)
  1. SUTENT [Suspect]
     Active Substance: SUNITINIB MALATE
     Indication: RENAL CANCER
     Dosage: 37.5 MG, CYCLIC (1 TAB PO QD (ONCE A DAY) FOR 28 DAYS ON, THEN 14 DAYS OFF)
     Route: 048
  2. SUTENT [Suspect]
     Active Substance: SUNITINIB MALATE
     Indication: METASTASES TO LUNG
     Dosage: 37.5 MG, CYCLIC (1 CAP ONCE A DAY FOR 28 DAY FOR 28 DAYS THEN 14 DAYS OFF 30 DAYS)
     Route: 048

REACTIONS (3)
  - Rash [Unknown]
  - Fluid retention [Unknown]
  - Product dose omission [Unknown]
